FAERS Safety Report 10592411 (Version 1)
Quarter: 2014Q4

REPORT INFORMATION
  Report Type: Spontaneous
  Country: US (occurrence: US)
  Receive Date: 20141119
  Receipt Date: 20141119
  Transmission Date: 20150529
  Serious: Yes (Other)
  Sender: FDA-Public Use
  Company Number: US-TEVA-523297USA

PATIENT
  Age: 29 Year
  Sex: Female
  Weight: 64.01 kg

DRUGS (1)
  1. PARAGARD T380A [Suspect]
     Active Substance: COPPER
     Indication: CONTRACEPTION
     Route: 015
     Dates: end: 20141103

REACTIONS (9)
  - Embedded device [Not Recovered/Not Resolved]
  - Presyncope [Recovered/Resolved]
  - Oligomenorrhoea [Recovered/Resolved]
  - Anxiety [Recovered/Resolved]
  - Flushing [Recovered/Resolved]
  - Pelvic pain [Not Recovered/Not Resolved]
  - Feeling hot [Recovered/Resolved]
  - Device expulsion [Recovered/Resolved]
  - Device breakage [Not Recovered/Not Resolved]

NARRATIVE: CASE EVENT DATE: 201410
